FAERS Safety Report 9031720 (Version 1)
Quarter: 2013Q1

REPORT INFORMATION
  Report Type: Spontaneous
  Country: US (occurrence: US)
  Receive Date: 20130124
  Receipt Date: 20130124
  Transmission Date: 20140127
  Serious: Yes (Life-Threatening, Hospitalization, Other)
  Sender: FDA-Public Use
  Company Number: US-SHIONOGI, INC-2013000099

PATIENT
  Age: 15 Year
  Sex: Female

DRUGS (13)
  1. KAPVAY [Suspect]
     Indication: AGGRESSION
     Dosage: 0.1 MG, EVERY MORNING
     Dates: end: 20130105
  2. KAPVAY [Suspect]
     Indication: POST-TRAUMATIC STRESS DISORDER
     Dosage: 0.2 MG, EVERY MORNING
     Dates: start: 20130106, end: 201301
  3. KAPVAY [Suspect]
     Indication: ANXIETY
  4. CLONIDINE [Suspect]
     Indication: INSOMNIA
     Dosage: 0.1 MG, EVERY NIGHT
     Dates: end: 201301
  5. CLONIDINE [Suspect]
     Dosage: 0.5 MG, EVERY NIGHT
  6. LAMICTAL [Concomitant]
     Dosage: 100 MG, EVERY MORNING
  7. LAMICTAL [Concomitant]
     Dosage: 125 MG, EVERY NIGHT AT BEDTIME
  8. CONTRACEPTIVES [Concomitant]
     Dosage: UNK, EVERY MORNING
  9. TRAZODONE HCL [Concomitant]
     Dosage: UNK, EVERY NIGHT AT BEDTIME
  10. MELATONIN [Concomitant]
     Dosage: 5 MG, EVERY NIGHT AT BEDTIME
  11. ADVAIR [Concomitant]
     Dosage: 100 MG, BID
     Route: 055
  12. LORATADINE [Concomitant]
     Dosage: 10 MG, EVERY MORNING
  13. MULTIVITAMINS [Concomitant]
     Dosage: UNK

REACTIONS (9)
  - Mania [Unknown]
  - Suicide attempt [Unknown]
  - Electrocardiogram QT prolonged [Unknown]
  - Asthenia [Recovered/Resolved]
  - Medication error [Unknown]
  - Off label use [Unknown]
  - Dizziness [Recovered/Resolved]
  - Decreased appetite [Unknown]
  - Hypotension [Recovered/Resolved]
